FAERS Safety Report 13182116 (Version 1)
Quarter: 2017Q1

REPORT INFORMATION
  Report Type: Spontaneous
  Country: US (occurrence: US)
  Receive Date: 20170203
  Receipt Date: 20170203
  Transmission Date: 20170428
  Serious: No
  Sender: FDA-Public Use
  Company Number: None

PATIENT

DRUGS (2)
  1. ILARIS [Suspect]
     Active Substance: CANAKINUMAB
     Dosage: TYPE - VIAL
  2. SOLIRIS [Suspect]
     Active Substance: ECULIZUMAB
     Dosage: TYPE - VIAL

REACTIONS (1)
  - Product label confusion [None]
